FAERS Safety Report 8530189-4 (Version None)
Quarter: 2012Q3

REPORT INFORMATION
  Report Type: 
  Country: None (occurrence: None)
  Receive Date: 20120723
  Receipt Date: 20120719
  Transmission Date: 20120928
  Serious: Yes (Other)
  Sender: FDA-Public Use
  Company Number: PHEH2012US014181

PATIENT
  Sex: Female

DRUGS (8)
  1. DIOVAN [Suspect]
     Dosage: 80 MG, UNK
  2. ANTIBIOTICS [Concomitant]
  3. LEVOTHYROXINE SODIUM [Concomitant]
     Dosage: 80 UG, UNK
  4. ACTONEL [Concomitant]
     Dosage: 150 MG, UNK
  5. OMEPRAZOLE [Concomitant]
     Dosage: 40 MG, UNK
  6. LOVASTATIN [Concomitant]
     Dosage: 40 MG, UNK
  7. ADVAIR DISKUS 100/50 [Concomitant]
     Dosage: 250 MG, UNK
  8. SINGULAIR [Concomitant]
     Dosage: 10 MG, UNK

REACTIONS (6)
  - FUNGAL INFECTION [None]
  - MALAISE [None]
  - COUGH [None]
  - GENERAL PHYSICAL HEALTH DETERIORATION [None]
  - ASTHMA [None]
  - DRUG HYPERSENSITIVITY [None]
